FAERS Safety Report 11553936 (Version 2)
Quarter: 2015Q4

REPORT INFORMATION
  Report Type: Spontaneous
  Country: US (occurrence: US)
  Receive Date: 20150925
  Receipt Date: 20151222
  Transmission Date: 20160304
  Serious: Yes (Other)
  Sender: FDA-Public Use
  Company Number: US-BAYER-2015-427149

PATIENT
  Age: 7 Year
  Sex: Male

DRUGS (1)
  1. KOGENATE FS [Suspect]
     Active Substance: ANTIHEMOPHILIC FACTOR, HUMAN RECOMBINANT
     Indication: HAEMOPHILIA
     Dosage: 2145 UNITS TIW

REACTIONS (4)
  - Injury [None]
  - Haematuria [None]
  - Haematuria [None]
  - Haematuria [None]

NARRATIVE: CASE EVENT DATE: 201004
